FAERS Safety Report 13473788 (Version 2)
Quarter: 2017Q3

REPORT INFORMATION
  Report Type: Spontaneous
  Country: US (occurrence: US)
  Receive Date: 20170424
  Receipt Date: 20170811
  Transmission Date: 20171127
  Serious: Yes (Hospitalization, Other)
  Sender: FDA-Public Use
  Company Number: US-SAOL THERAPEUTICS-2017SAO00739

PATIENT
  Age: 23 Year
  Sex: Male
  Weight: 72.6 kg

DRUGS (15)
  1. DILANTIN [Concomitant]
     Active Substance: PHENYTOIN
     Dosage: 3 TABLETS, 1X/DAY IN THE EVENING
  2. DESYREL [Concomitant]
     Active Substance: TRAZODONE HYDROCHLORIDE
     Dosage: 50 MG, 1X/DAY
     Route: 048
  3. BACLOFEN. [Concomitant]
     Active Substance: BACLOFEN
     Indication: MUSCLE SPASTICITY
     Dosage: 15 MG, 3X/DAY
     Route: 048
  4. LIORESAL [Suspect]
     Active Substance: BACLOFEN
     Dosage: 100 ?G, \DAY
     Route: 037
  5. TYLENOL [Concomitant]
     Active Substance: ACETAMINOPHEN
     Dosage: 650 MG, AS NEEDED
     Route: 048
  6. DILANTIN [Concomitant]
     Active Substance: PHENYTOIN
     Dosage: 2.5 TABLETS, 1X/DAY IN THE MORNING
     Route: 048
  7. ROBAFEN-DM [Concomitant]
     Indication: COUGH
     Dosage: UNK, AS NEEDED
     Route: 048
  8. KAO-TIN DOCUSATE CALCIUM [Concomitant]
     Route: 048
  9. ATIVAN [Concomitant]
     Active Substance: LORAZEPAM
     Indication: AGITATION
     Dosage: UNK, AS NEEDED FOR BLOOD TESTS
  10. MAGNESIUM HYDROXIDE. [Concomitant]
     Active Substance: MAGNESIUM HYDROXIDE
     Route: 048
  11. RISPERDAL [Concomitant]
     Active Substance: RISPERIDONE
     Dosage: 0.25 MG, 3X/DAY
     Route: 048
  12. INTRAVENOUS ANTIBIOTICS (UNSPECIFIED) [Concomitant]
     Dosage: UNK
     Route: 042
     Dates: start: 20170411
  13. BACITRACIN ZINC. [Concomitant]
     Active Substance: BACITRACIN ZINC
     Route: 061
  14. KEFLEX [Concomitant]
     Active Substance: CEPHALEXIN
     Dosage: 500 MG, 2X/DAY
     Dates: start: 20170412, end: 20170415
  15. LIDOCAINE, EPINEPHRINE [Concomitant]
     Route: 023

REACTIONS (7)
  - Sepsis [Recovering/Resolving]
  - Pyuria [Unknown]
  - Strangulated hernia [Recovering/Resolving]
  - Urine output decreased [Unknown]
  - Implant site cellulitis [Unknown]
  - Blood glucose increased [Unknown]
  - Implant site erosion [Unknown]

NARRATIVE: CASE EVENT DATE: 201704
